FAERS Safety Report 4526175-1 (Version None)
Quarter: 2004Q4

REPORT INFORMATION
  Report Type: 
  Country: None (occurrence: None)
  Receive Date: 20041210
  Receipt Date: 20041124
  Transmission Date: 20050328
  Serious: Yes (Death)
  Sender: FDA-Public Use
  Company Number: 2004-CN-00437CN

PATIENT
  Age: 68 Year
  Sex: Male

DRUGS (2)
  1. MICARDIS [Suspect]
     Indication: HYPERTENSION
     Dosage: 80 MG (80 MG, OD)
     Route: 048
     Dates: start: 20040606, end: 20040919
  2. FIORINAL [Concomitant]

REACTIONS (2)
  - ASPIRATION [None]
  - MYOCARDIAL INFARCTION [None]
